FAERS Safety Report 5011127-8 (Version None)
Quarter: 2006Q2

REPORT INFORMATION
  Report Type: 
  Country: None (occurrence: None)
  Receive Date: 20060523
  Receipt Date: 20060516
  Transmission Date: 20061013
  Serious: Yes (Other)
  Sender: FDA-Public Use
  Company Number: GBWYE630717MAY06

PATIENT
  Age: 52 Year
  Sex: Female

DRUGS (1)
  1. EFFEXOR XR [Suspect]
     Dosage: ; 75 MG
     Route: 048
     Dates: start: 19990101

REACTIONS (8)
  - AGITATION [None]
  - ANXIETY [None]
  - DRUG WITHDRAWAL SYNDROME [None]
  - HEADACHE [None]
  - INFLUENZA LIKE ILLNESS [None]
  - PHARMACEUTICAL PRODUCT COMPLAINT [None]
  - SUICIDAL IDEATION [None]
  - VOMITING [None]
